FAERS Safety Report 12399788 (Version 3)
Quarter: 2016Q3

REPORT INFORMATION
  Report Type: Spontaneous
  Country: US (occurrence: US)
  Receive Date: 20160524
  Receipt Date: 20160725
  Transmission Date: 20161109
  Serious: No
  Sender: FDA-Public Use
  Company Number: US-CELGENEUS-USA-2016054919

PATIENT
  Sex: Female
  Weight: 60.84 kg

DRUGS (2)
  1. POMALYST [Suspect]
     Active Substance: POMALIDOMIDE
     Route: 048
     Dates: start: 20160502
  2. POMALYST [Suspect]
     Active Substance: POMALIDOMIDE
     Indication: PLASMA CELL MYELOMA
     Route: 048
     Dates: start: 20160428

REACTIONS (7)
  - Fatigue [Unknown]
  - Nervousness [Unknown]
  - Feeling jittery [Unknown]
  - Drug dose omission [Unknown]
  - Tremor [Unknown]
  - Muscular weakness [Unknown]
  - Insomnia [Unknown]

NARRATIVE: CASE EVENT DATE: 2016
